FAERS Safety Report 17412158 (Version 1)
Quarter: 2020Q1

REPORT INFORMATION
  Report Type: Spontaneous
  Country: US (occurrence: US)
  Receive Date: 20200129
  Receipt Date: 20200129
  Transmission Date: 20200409
  Serious: Yes (Hospitalization)
  Sender: FDA-Public Use
  Company Number: None

PATIENT
  Age: 85 Year
  Sex: Female

DRUGS (1)
  1. IBRANCE [Suspect]
     Active Substance: PALBOCICLIB
     Indication: NEOPLASM MALIGNANT
     Route: 048
     Dates: start: 20150715

REACTIONS (5)
  - Hypertension [None]
  - Therapy cessation [None]
  - Diarrhoea [None]
  - Abdominal discomfort [None]
  - Dehydration [None]

NARRATIVE: CASE EVENT DATE: 201912
